FAERS Safety Report 5632035-5 (Version None)
Quarter: 2008Q1

REPORT INFORMATION
  Report Type: 
  Country: None (occurrence: None)
  Receive Date: 20080220
  Receipt Date: 20080206
  Transmission Date: 20080703
  Serious: Yes (Other)
  Sender: FDA-Public Use
  Company Number: US-BAYER-200810552BCC

PATIENT
  Age: 40 Year
  Sex: Male
  Weight: 104 kg

DRUGS (1)
  1. ALKA SELTZER PLUS COLD [Suspect]
     Indication: NASOPHARYNGITIS
     Route: 048
     Dates: start: 20080101

REACTIONS (7)
  - ANGIOEDEMA [None]
  - DYSPHAGIA [None]
  - DYSPNOEA [None]
  - FLATULENCE [None]
  - PHARYNGOLARYNGEAL DISCOMFORT [None]
  - SENSATION OF FOREIGN BODY [None]
  - THROAT TIGHTNESS [None]
